FAERS Safety Report 9866981 (Version 1)
Quarter: 2014Q1

REPORT INFORMATION
  Report Type: Spontaneous
  Country: US (occurrence: None)
  Receive Date: 20140131
  Receipt Date: 20140131
  Transmission Date: 20141002
  Serious: Yes (Hospitalization)
  Sender: FDA-Public Use
  Company Number: FK201400261

PATIENT
  Age: 18 Month
  Sex: Male

DRUGS (6)
  1. CLONIDINE HYDROCHLORIDE [Suspect]
     Indication: NECK PAIN
     Dosage: 2 MG, SINGLE  PUMP, TOPICAL
     Route: 061
  2. LIDOCAINE (MANUFACTURER UNKNOWN) (LIDOCAINE) (LIDOCAINE) [Suspect]
     Indication: NECK PAIN
     Dosage: 10 MG, SINGLE PUMP, TOPICAL
  3. KETAMINE (KETAMINE) [Suspect]
     Indication: NECK PAIN
     Route: 061
  4. GABAPENTIN (GABAPENTIN) [Suspect]
     Indication: NECK PAIN
     Dosage: 60 MG, SINGLE PUMP, TOPICAL
     Route: 061
  5. MEFENAMIC ACID [Suspect]
     Indication: NECK PAIN
     Dosage: 10 MG,  SINGLE PUMP, TOPICAL
     Route: 061
  6. IMIPRAMINE (IMIPRAMINE) (IMIPRAMINE) [Suspect]
     Indication: NECK PAIN
     Dosage: 30 MG, SINGLE PUMP, TOPICAL
     Route: 061

REACTIONS (8)
  - Wrong drug administered [None]
  - Unresponsive to stimuli [None]
  - Hyporeflexia [None]
  - Dyspnoea [None]
  - Toxicity to various agents [None]
  - Blood glucose increased [None]
  - Respiratory disorder [None]
  - Sinus bradycardia [None]
